FAERS Safety Report 19138338 (Version 1)
Quarter: 2021Q2

REPORT INFORMATION
  Report Type: Report from Study
  Country: CA (occurrence: CA)
  Receive Date: 20210415
  Receipt Date: 20210415
  Transmission Date: 20210717
  Serious: Yes (Other)
  Sender: FDA-Public Use
  Company Number: CA-EMD SERONO-9230722

PATIENT
  Age: 23 Year
  Sex: Female

DRUGS (3)
  1. BENADRYL [Suspect]
     Active Substance: DIPHENHYDRAMINE HYDROCHLORIDE
     Indication: PRODUCT USED FOR UNKNOWN INDICATION
     Dosage: DOSAGE FORM: NOT SPECIFIED
     Route: 065
  2. REBIF [Suspect]
     Active Substance: INTERFERON BETA-1A
     Indication: PRODUCT USED FOR UNKNOWN INDICATION
     Dosage: DOSAGE FORM: SOLUTION?REBIF PREFILLED SYRINGE
     Route: 058
  3. OCRELIZUMAB. [Suspect]
     Active Substance: OCRELIZUMAB
     Indication: RELAPSING-REMITTING MULTIPLE SCLEROSIS
     Dosage: DOSAGE FORM: INFUSION
     Route: 042

REACTIONS (9)
  - Hypoaesthesia [Unknown]
  - Syncope [Unknown]
  - Dizziness [Unknown]
  - Illness [Unknown]
  - Panic attack [Unknown]
  - Asthenia [Unknown]
  - Infusion related reaction [Unknown]
  - Somnolence [Unknown]
  - Drug ineffective [Unknown]
